FAERS Safety Report 23748584 (Version 1)
Quarter: 2024Q2

REPORT INFORMATION
  Report Type: Report from Study
  Country: MY (occurrence: MY)
  Receive Date: 20240416
  Receipt Date: 20240416
  Transmission Date: 20240716
  Serious: Yes (Hospitalization)
  Sender: FDA-Public Use
  Company Number: MY-SUN PHARMACEUTICAL INDUSTRIES LTD-2024R1-441448

PATIENT
  Age: 38 Year
  Sex: Male
  Weight: 57.5 kg

DRUGS (5)
  1. OXALIPLATIN [Suspect]
     Active Substance: OXALIPLATIN
     Indication: Oesophageal adenocarcinoma
     Dosage: UNK
     Route: 042
     Dates: start: 20240217, end: 20240228
  2. CAPECITABINE [Suspect]
     Active Substance: CAPECITABINE
     Indication: Oesophageal adenocarcinoma
     Dosage: UNK
     Route: 048
     Dates: start: 20240117, end: 20240207
  3. TISLELIZUMAB [Suspect]
     Active Substance: TISLELIZUMAB
     Indication: Oesophageal adenocarcinoma
     Dosage: UNK (200 MILLIGRAM)
     Route: 042
     Dates: start: 20240117, end: 20240207
  4. TRASTUZUMAB [Suspect]
     Active Substance: TRASTUZUMAB
     Indication: Oesophageal adenocarcinoma
     Dosage: UNK
     Route: 065
  5. ZANIDATAMAB [Suspect]
     Active Substance: ZANIDATAMAB
     Indication: Oesophageal adenocarcinoma
     Dosage: UNK (8 MILLIGRAM/KILOGRAM,FIRST CYCLE, SUBSEQUENT CYCLE 6 MG/KG)
     Route: 042
     Dates: start: 20240117, end: 20240207

REACTIONS (5)
  - Drug hypersensitivity [Recovered/Resolved]
  - Tachycardia [Recovered/Resolved]
  - Flushing [Recovered/Resolved]
  - Rash [Recovered/Resolved]
  - Nausea [Recovered/Resolved]

NARRATIVE: CASE EVENT DATE: 20240228
